FAERS Safety Report 5968030-6 (Version None)
Quarter: 2008Q4

REPORT INFORMATION
  Report Type: 
  Country: None (occurrence: None)
  Receive Date: 20081126
  Receipt Date: 20081118
  Transmission Date: 20090506
  Serious: Yes (Hospitalization, Other)
  Sender: FDA-Public Use
  Company Number: US-AMGEN-QUU319673

PATIENT
  Sex: Female

DRUGS (1)
  1. ENBREL [Suspect]
     Indication: RHEUMATOID ARTHRITIS
     Route: 058
     Dates: start: 19970101

REACTIONS (9)
  - BLOOD TEST ABNORMAL [None]
  - BURNS SECOND DEGREE [None]
  - FATIGUE [None]
  - MORTON'S NEUROMA [None]
  - PAIN IN EXTREMITY [None]
  - POST PROCEDURAL SWELLING [None]
  - PRODUCTIVE COUGH [None]
  - SPINAL OPERATION [None]
  - WOUND DEHISCENCE [None]
